FAERS Safety Report 23690297 (Version 3)
Quarter: 2024Q2

REPORT INFORMATION
  Report Type: Spontaneous
  Country: IT (occurrence: IT)
  Receive Date: 20240401
  Receipt Date: 20240415
  Transmission Date: 20240716
  Serious: Yes (Other)
  Sender: FDA-Public Use
  Company Number: None

PATIENT
  Age: 72 Year
  Sex: Male

DRUGS (1)
  1. STELARA [Suspect]
     Active Substance: USTEKINUMAB
     Indication: Psoriasis
     Dosage: 45MG/84GG
     Route: 058
     Dates: start: 20161020, end: 20240304

REACTIONS (3)
  - Nail psoriasis [Recovered/Resolved]
  - Drug ineffective [Recovered/Resolved]
  - Psoriasis area severity index decreased [Recovered/Resolved]

NARRATIVE: CASE EVENT DATE: 20240201
